FAERS Safety Report 22068530 (Version 1)
Quarter: 2023Q1

REPORT INFORMATION
  Report Type: Report from Study
  Country: GB (occurrence: GB)
  Receive Date: 20230307
  Receipt Date: 20230307
  Transmission Date: 20230418
  Serious: Yes (Hospitalization, Other)
  Sender: FDA-Public Use
  Company Number: GB-KOREA IPSEN Pharma-2023-04377

PATIENT
  Age: 77 Year
  Sex: Female

DRUGS (2)
  1. LANREOTIDE ACETATE [Suspect]
     Active Substance: LANREOTIDE ACETATE
     Indication: Neuroendocrine tumour
     Dosage: 120MG/0.5ML
     Route: 058
  2. LANREOTIDE ACETATE [Suspect]
     Active Substance: LANREOTIDE ACETATE
     Route: 065
     Dates: start: 20230124

REACTIONS (3)
  - Hip fracture [Unknown]
  - Surgery [Unknown]
  - Fall [Unknown]

NARRATIVE: CASE EVENT DATE: 20230123
